FAERS Safety Report 5121606-0 (Version None)
Quarter: 2006Q4

REPORT INFORMATION
  Report Type: 
  Country: None (occurrence: None)
  Receive Date: 20061006
  Receipt Date: 20060925
  Transmission Date: 20070319
  Serious: Yes (Hospitalization)
  Sender: FDA-Public Use
  Company Number: NL-AVENTIS-200614950EU

PATIENT
  Age: 80 Year
  Sex: Female

DRUGS (11)
  1. LASIX [Suspect]
     Indication: HYPERTENSION
     Route: 048
  2. SPIRONOLACTONE [Suspect]
     Indication: HYPERTENSION
  3. METFORMIN [Suspect]
  4. CAPTOPRIL [Suspect]
  5. NADROPARIN [Concomitant]
  6. TOLBUTAMIDE [Concomitant]
  7. TOLBUTAMIDE [Concomitant]
  8. ACETAMINOPHEN [Concomitant]
  9. PANTOPRAZOL [Concomitant]
  10. TEMAZEPAM [Concomitant]
  11. DOXYCYCLINE [Concomitant]
     Dates: start: 20051021

REACTIONS (14)
  - ABDOMINAL PAIN UPPER [None]
  - CLOSTRIDIUM DIFFICILE COLITIS [None]
  - DEHYDRATION [None]
  - DRUG LEVEL INCREASED [None]
  - GLOMERULAR FILTRATION RATE DECREASED [None]
  - HYPERVENTILATION [None]
  - HYPOTENSION [None]
  - LACTIC ACIDOSIS [None]
  - LETHARGY [None]
  - METABOLIC ACIDOSIS [None]
  - RENAL IMPAIRMENT [None]
  - RESPIRATORY ALKALOSIS [None]
  - VASODILATATION [None]
  - VENTRICULAR ARRHYTHMIA [None]
